FAERS Safety Report 20175179 (Version 1)
Quarter: 2021Q4

REPORT INFORMATION
  Report Type: Spontaneous
  Country: US (occurrence: US)
  Receive Date: 20211213
  Receipt Date: 20211213
  Transmission Date: 20220303
  Serious: Yes (Other)
  Sender: FDA-Public Use
  Company Number: US-drreddys-SPO/USA/21/0144412

PATIENT
  Age: 33 Year
  Sex: Female

DRUGS (1)
  1. ZENATANE [Suspect]
     Active Substance: ISOTRETINOIN
     Indication: Product used for unknown indication
     Dosage: RMA ISSUE DATE:7 JULY 2021 6:49:34 PM,14 SEPTEMBER 2021 2:22:27 PM,25 OCTOBER 2021 10:43:30 AM

REACTIONS (2)
  - Inflammatory bowel disease [Unknown]
  - Colitis [Unknown]
